FAERS Safety Report 6238489-8 (Version None)
Quarter: 2009Q2

REPORT INFORMATION
  Report Type: 
  Country: None (occurrence: None)
  Receive Date: 20090622
  Receipt Date: 20090610
  Transmission Date: 20091009
  Serious: Yes (Other)
  Sender: FDA-Public Use
  Company Number: US-ROCHE-638818

PATIENT

DRUGS (2)
  1. CAPECITABINE [Suspect]
     Route: 065
  2. BEVACIZUMAB [Suspect]
     Dosage: 7.5 MG/KG, Q3W
     Route: 065

REACTIONS (1)
  - GASTROINTESTINAL PERFORATION [None]
